FAERS Safety Report 10010501 (Version 1)
Quarter: 2014Q1

REPORT INFORMATION
  Report Type: Spontaneous
  Country: PT (occurrence: PT)
  Receive Date: 20140314
  Receipt Date: 20140314
  Transmission Date: 20141002
  Serious: Yes (Other)
  Sender: FDA-Public Use
  Company Number: PT-009507513-1403PRT006352

PATIENT
  Age: 1 Year
  Sex: Female

DRUGS (3)
  1. CELESTONE [Suspect]
     Indication: BRONCHIOLITIS
     Route: 048
     Dates: start: 20121217
  2. SINGULAIR [Concomitant]
     Indication: BRONCHIOLITIS
     Route: 048
  3. BUDESONIDE [Concomitant]
     Indication: BRONCHIOLITIS
     Dosage: 1 PUFF 2X/DIA

REACTIONS (5)
  - Agitation [Recovered/Resolved]
  - Crying [Recovered/Resolved]
  - Hyperhidrosis [Recovered/Resolved]
  - Rash [Recovered/Resolved]
  - Rash [Recovered/Resolved]
